FAERS Safety Report 14693602 (Version 1)
Quarter: 2018Q1

REPORT INFORMATION
  Report Type: Spontaneous
  Country: FR (occurrence: FR)
  Receive Date: 20180329
  Receipt Date: 20180329
  Transmission Date: 20180509
  Serious: Yes (Other)
  Sender: FDA-Public Use
  Company Number: FR-GLAXOSMITHKLINE-FR2018048710

PATIENT
  Age: 58 Year
  Sex: Male
  Weight: 52 kg

DRUGS (5)
  1. VALIUM [Interacting]
     Active Substance: DIAZEPAM
     Indication: SCHIZOPHRENIA
     Dosage: 120 GTT, QD
     Route: 048
     Dates: start: 20180215
  2. LEPTICUR [Interacting]
     Active Substance: TROPATEPINE HYDROCHLORIDE
     Indication: EXTRAPYRAMIDAL DISORDER
     Dosage: 30 MG, QD
     Route: 048
     Dates: start: 20180215
  3. OLANZAPINE. [Interacting]
     Active Substance: OLANZAPINE
     Indication: SCHIZOPHRENIA
     Dosage: 20 MG, QD
     Route: 048
     Dates: start: 20171009
  4. LOXAPAC [Interacting]
     Active Substance: LOXAPINE
     Indication: SCHIZOPHRENIA
     Dosage: 300 MG, QD
     Route: 048
     Dates: start: 20180214
  5. SCOPODERM TTS [Suspect]
     Active Substance: SCOPOLAMINE
     Indication: EXTRAPYRAMIDAL DISORDER
     Dosage: 1 MG, UNK
     Route: 003
     Dates: start: 20180215

REACTIONS (2)
  - Constipation [Recovered/Resolved]
  - Drug interaction [Unknown]

NARRATIVE: CASE EVENT DATE: 20180215
